FAERS Safety Report 10373882 (Version 1)
Quarter: 2014Q1

REPORT INFORMATION
  Report Type: Spontaneous
  Country: US (occurrence: None)
  Receive Date: 20140306
  Receipt Date: 20140306
  Transmission Date: 20141002
  Serious: Yes (Other)
  Sender: FDA-Public Use
  Company Number: 163-21880-13074132

PATIENT
  Age: 72 Year
  Sex: Female

DRUGS (14)
  1. REVLIMID (LENALIDOMIDE) (25 MILLIGRAM, CAPSULES) [Suspect]
     Indication: PLASMA CELL MYELOMA
     Route: 048
     Dates: start: 201109, end: 2011
  2. DEXAMETHASONE (DEXAMETHASONE) [Concomitant]
  3. ACYCLOVIR (ACICLOVIR) (TABLETS) [Concomitant]
  4. ADVAIR HFA (SERETIDE MITE) (AEROSOL FOR INHALATION) [Concomitant]
  5. ALBUTEROL (SALBUTAMOL) (INHALANT) [Concomitant]
  6. AMLODIPINE (AMLODIPINE) (TABLETS) [Concomitant]
  7. ASPIRIN (ACETYLSALICYLIC ACID) (TABLETS) [Concomitant]
  8. ASTELIN (AZELASTINE HYDROCHLORIDE) (NASAL DROPS (INCLUDING NASAL SPRAY0 [Concomitant]
  9. BLACK COHASH (ALL OTHER NON-THERAPEUTIC PRODUCTS) (CAPSULES) [Concomitant]
  10. HYDROCODONE-ACETAMINOPHEN (PROCET/USA) (TABLETS) [Concomitant]
  11. ATROVENT (IPRATROPIUM BROMIDE) (SPRAY NOT INHALATION)) [Concomitant]
  12. LYRICA (PREGABALIN) (CAPSULES) [Concomitant]
  13. NASONEX (MOMETASONE FUROATE) (INHALANT) [Concomitant]
  14. BACTRIM (BACTRIM) (TABLETS) [Concomitant]

REACTIONS (4)
  - Bone marrow failure [None]
  - Tremor [None]
  - Plasma cell myeloma recurrent [None]
  - Neuropathy peripheral [None]
